FAERS Safety Report 6589054-4 (Version None)
Quarter: 2010Q1

REPORT INFORMATION
  Report Type: 
  Country: None (occurrence: None)
  Receive Date: 20100218
  Receipt Date: 20100211
  Transmission Date: 20100710
  Serious: Yes (Other)
  Sender: FDA-Public Use
  Company Number: US-MERCK-0705USA04118

PATIENT
  Age: 54 Year
  Sex: Female
  Weight: 44 kg

DRUGS (2)
  1. FOSAMAX [Suspect]
     Indication: OSTEOPENIA
     Route: 048
     Dates: start: 20050501, end: 20060501
  2. [THERAPY UNSPECIFIED] [Concomitant]
     Route: 065
     Dates: start: 19770101

REACTIONS (16)
  - ABSCESS [None]
  - ANIMAL BITE [None]
  - ANXIETY [None]
  - BIOPSY BREAST [None]
  - BONE DENSITY DECREASED [None]
  - CELLULITIS [None]
  - ENDODONTIC PROCEDURE [None]
  - GINGIVAL INFECTION [None]
  - LIP SWELLING [None]
  - LIPOMA EXCISION [None]
  - LOOSE TOOTH [None]
  - MALIGNANT MELANOMA [None]
  - MULTIPLE INJURIES [None]
  - SKIN CANCER [None]
  - TOOTH LOSS [None]
  - TREATMENT NONCOMPLIANCE [None]
